FAERS Safety Report 11868572 (Version 3)
Quarter: 2016Q1

REPORT INFORMATION
  Report Type: Spontaneous
  Country: JP (occurrence: JP)
  Receive Date: 20151225
  Receipt Date: 20160127
  Transmission Date: 20160526
  Serious: Yes (Other)
  Sender: FDA-Public Use
  Company Number: JP-ROCHE-1682177

PATIENT
  Age: 9 Year
  Sex: Female

DRUGS (4)
  1. CELLCEPT [Suspect]
     Active Substance: MYCOPHENOLATE MOFETIL\MYCOPHENOLATE MOFETIL HYDROCHLORIDE
     Indication: HENOCH-SCHONLEIN PURPURA NEPHRITIS
     Route: 048
  2. ENDOXAN [Concomitant]
     Active Substance: CYCLOPHOSPHAMIDE
     Route: 065
  3. RITUXIMAB [Concomitant]
     Active Substance: RITUXIMAB
     Dosage: (GENETICAL RECOMBINATION).
     Route: 065
  4. NEORAL [Concomitant]
     Active Substance: CYCLOSPORINE
     Route: 065

REACTIONS (6)
  - Renal impairment [Unknown]
  - Ileus [Unknown]
  - Cardiac tamponade [Unknown]
  - Off label use [Unknown]
  - Diarrhoea [Unknown]
  - Infection [Unknown]
